FAERS Safety Report 5817730-7 (Version None)
Quarter: 2008Q3

REPORT INFORMATION
  Report Type: 
  Country: None (occurrence: None)
  Receive Date: 20080722
  Receipt Date: 20080715
  Transmission Date: 20090109
  Serious: Yes (Hospitalization, Other)
  Sender: FDA-Public Use
  Company Number: PHFR2005IE01899

PATIENT
  Sex: Male

DRUGS (11)
  1. CLOZARIL [Suspect]
     Indication: SCHIZOPHRENIA, PARANOID TYPE
     Dosage: 250MG PER DAY
     Route: 048
     Dates: start: 20050401
  2. CLOZARIL [Suspect]
     Dosage: 125MG MANE/175MG NOCTE
     Route: 048
  3. CLONAZEPAM [Suspect]
     Dosage: 0.25MG MANE
  4. OLANZAPINE [Concomitant]
     Indication: SCHIZOPHRENIA, PARANOID TYPE
     Dosage: 10MG PER DAY
     Route: 048
  5. PROTHIADEN [Concomitant]
     Indication: MOOD ALTERED
     Dosage: 200MG PER DAY
     Route: 048
  6. HYOSCINE [Concomitant]
     Indication: SALIVARY HYPERSECRETION
     Dosage: 0.3MG PER DAY
  7. CLONAZEPAM [Concomitant]
     Dosage: 0.25 MG, QD
     Route: 048
  8. NEXIUM [Concomitant]
     Indication: NAUSEA
     Dosage: 40MG PER DAY
     Route: 048
  9. LACTULOSE [Concomitant]
     Dosage: 10ML PER DAY
  10. ATROPINE SULFATE [Concomitant]
     Route: 060
  11. CYSTEINE [Concomitant]
     Dosage: 6MG NOCTE

REACTIONS (10)
  - BLOOD GLUCOSE INCREASED [None]
  - BODY TEMPERATURE INCREASED [None]
  - CIRCULATORY COLLAPSE [None]
  - DIABETES MELLITUS [None]
  - DYSPNOEA [None]
  - FALL [None]
  - LOWER RESPIRATORY TRACT INFECTION [None]
  - MUSCULAR WEAKNESS [None]
  - RESPIRATORY TRACT INFECTION [None]
  - URINARY TRACT INFECTION [None]
